FAERS Safety Report 18102089 (Version 2)
Quarter: 2021Q3

REPORT INFORMATION
  Report Type: Spontaneous
  Country: US (occurrence: US)
  Receive Date: 20200803
  Receipt Date: 20210803
  Transmission Date: 20211014
  Serious: No
  Sender: FDA-Public Use
  Company Number: US-AUROBINDO-AUR-APL-2020-010563

PATIENT
  Sex: Female

DRUGS (1)
  1. CEFPODOXIME PROXETIL TABLETS USP 200MG [Suspect]
     Active Substance: CEFPODOXIME PROXETIL
     Indication: INFECTION
     Dosage: TWO TABLETS PER DAY
     Route: 065
     Dates: start: 20200131, end: 20200210

REACTIONS (3)
  - Muscular weakness [Not Recovered/Not Resolved]
  - Therapeutic product effect delayed [Unknown]
  - Myalgia [Not Recovered/Not Resolved]
